FAERS Safety Report 4890676-7 (Version None)
Quarter: 2006Q1

REPORT INFORMATION
  Report Type: 
  Country: None (occurrence: None)
  Receive Date: 20060123
  Receipt Date: 20060109
  Transmission Date: 20060701
  Serious: Yes (Hospitalization, Other)
  Sender: FDA-Public Use
  Company Number: 2005122045

PATIENT
  Age: 47 Year
  Sex: Male
  Weight: 74.8435 kg

DRUGS (9)
  1. NEURONTIN [Suspect]
     Indication: ANXIETY
     Dosage: 600 MG (200 MG, 3 IN 1 D), ORAL
     Route: 048
     Dates: start: 20050101
  2. NEURONTIN [Suspect]
     Indication: BIPOLAR DISORDER
     Dosage: 600 MG (200 MG, 3 IN 1 D), ORAL
     Route: 048
     Dates: start: 20050101
  3. ALL OTHER THERAPEUTIC PRODUCTS (ALL OTHER THERAPEUTIC PRODUCTS( [Suspect]
     Indication: ILL-DEFINED DISORDER
     Dosage: ORAL
     Route: 048
     Dates: start: 20050801
  4. LEXAPRO [Suspect]
     Indication: ILL-DEFINED DISORDER
     Dates: start: 20050901
  5. ZYPREXA [Suspect]
     Indication: ILL-DEFINED DISORDER
     Dosage: 12.5 MG, ORAL
     Route: 048
  6. CYMBALTA [Suspect]
     Indication: ILL-DEFINED DISORDER
     Dosage: 60 MG (1 D)
  7. LITHIUM CARBONATE [Suspect]
     Indication: ILL-DEFINED DISORDER
  8. KLONOPIN [Suspect]
  9. DEPAKOTE [Concomitant]

REACTIONS (12)
  - ANXIETY [None]
  - BACK PAIN [None]
  - BLOOD CHOLESTEROL INCREASED [None]
  - BLOOD PRESSURE FLUCTUATION [None]
  - CEREBROVASCULAR ACCIDENT [None]
  - CONDITION AGGRAVATED [None]
  - DRUG HYPERSENSITIVITY [None]
  - NEUROPATHY [None]
  - RETCHING [None]
  - THROAT TIGHTNESS [None]
  - TONGUE PARALYSIS [None]
  - TREMOR [None]
